FAERS Safety Report 7604280-0 (Version None)
Quarter: 2011Q3

REPORT INFORMATION
  Report Type: 
  Country: None (occurrence: None)
  Receive Date: 20110712
  Receipt Date: 20110707
  Transmission Date: 20111222
  Serious: Yes (Death)
  Sender: FDA-Public Use
  Company Number: VE-PFIZER INC-2011146747

PATIENT
  Age: 97 Year
  Sex: Female

DRUGS (1)
  1. LIPITOR [Suspect]
     Dosage: ONE TABLET ONCE DAILY
     Route: 048

REACTIONS (1)
  - VENOUS OPERATION [None]
